FAERS Safety Report 11925192 (Version 2)
Quarter: 2017Q1

REPORT INFORMATION
  Report Type: Spontaneous
  Country: GB (occurrence: GB)
  Receive Date: 20160118
  Receipt Date: 20170112
  Transmission Date: 20170428
  Serious: Yes (Other)
  Sender: FDA-Public Use
  Company Number: GB-MYLANLABS-2016M1001575

PATIENT

DRUGS (3)
  1. GABAPENTIN. [Suspect]
     Active Substance: GABAPENTIN
     Indication: PRODUCT USED FOR UNKNOWN INDICATION
     Dosage: UNK
     Route: 065
  2. GABAPENTIN. [Suspect]
     Active Substance: GABAPENTIN
     Dosage: UNK (THE PATIENT WAS ALSO TAKING GABAPENTIN WHICH THE DOCTOR HAD GRADUALLY INCREASED TO 3 A DAY)
     Route: 065
  3. SOLPADOL                           /00116401/ [Suspect]
     Active Substance: ACETAMINOPHEN\CODEINE PHOSPHATE
     Indication: PAIN
     Dosage: 2 DF, TID (FORM: CAPLETS)
     Route: 048

REACTIONS (2)
  - Memory impairment [Unknown]
  - Drug dependence [Unknown]
